FAERS Safety Report 6301551-5 (Version None)
Quarter: 2009Q3

REPORT INFORMATION
  Report Type: 
  Country: None (occurrence: None)
  Receive Date: 20090807
  Receipt Date: 20090727
  Transmission Date: 20100115
  Serious: Yes (Other)
  Sender: FDA-Public Use
  Company Number: US-ELI_LILLY_AND_COMPANY-US200906003571

PATIENT
  Sex: Female

DRUGS (3)
  1. EVISTA [Suspect]
     Indication: OSTEOPOROSIS
     Dosage: UNK, UNKNOWN
     Route: 065
     Dates: start: 20090610, end: 20090610
  2. THYROID TAB [Concomitant]
     Indication: THYROID DISORDER
     Dosage: 60 MG, UNKNOWN
     Route: 065
  3. TRAMADOL HCL [Concomitant]
     Dosage: UNK, AS NEEDED
     Route: 065

REACTIONS (8)
  - ASTHENIA [None]
  - EYE DISORDER [None]
  - FACIAL PAIN [None]
  - HEADACHE [None]
  - MALAISE [None]
  - SYNCOPE [None]
  - TRANSIENT ISCHAEMIC ATTACK [None]
  - VOMITING [None]
